FAERS Safety Report 13252331 (Version 7)
Quarter: 2018Q1

REPORT INFORMATION
  Report Type: Spontaneous
  Country: FR (occurrence: FR)
  Receive Date: 20170220
  Receipt Date: 20180131
  Transmission Date: 20180508
  Serious: Yes (Hospitalization, Other)
  Sender: FDA-Public Use
  Company Number: FR-MYLANLABS-2016M1041000

PATIENT
  Age: 33 Year
  Sex: Male
  Weight: 103 kg

DRUGS (72)
  1. LEPONEX [Suspect]
     Active Substance: CLOZAPINE
     Dosage: 9 DF, QD
     Route: 048
     Dates: start: 20130618
  2. LEPONEX [Suspect]
     Active Substance: CLOZAPINE
     Dosage: 9 DF, QD
     Route: 048
     Dates: start: 20130801
  3. LEPONEX [Suspect]
     Active Substance: CLOZAPINE
     Dosage: 9 DF, QD
     Route: 048
     Dates: start: 20131013
  4. LEPONEX [Suspect]
     Active Substance: CLOZAPINE
     Dosage: 4 DF, QD
     Dates: start: 20140309
  5. LEPONEX [Suspect]
     Active Substance: CLOZAPINE
     Dosage: 2 DF, QD
     Route: 048
     Dates: start: 20140312, end: 20140313
  6. LYSANXIA [Concomitant]
     Active Substance: PRAZEPAM
     Dosage: 10 MG, TID
     Dates: start: 20130801
  7. LYSANXIA [Concomitant]
     Active Substance: PRAZEPAM
     Dosage: 10 MG, TID
     Dates: start: 20131128
  8. LYSANXIA [Concomitant]
     Active Substance: PRAZEPAM
     Dosage: 10 MG, TID
     Dates: start: 20140116
  9. THERALENE [Concomitant]
     Active Substance: TRIMEPRAZINE
     Dosage: 1 DF, UNK
     Dates: start: 20121029
  10. LEPONEX [Suspect]
     Active Substance: CLOZAPINE
     Dosage: 8 DF, QD
     Route: 048
     Dates: start: 201208
  11. LEPONEX [Suspect]
     Active Substance: CLOZAPINE
     Dosage: 9 DF, QD
     Route: 048
     Dates: start: 20130604
  12. LEPONEX [Suspect]
     Active Substance: CLOZAPINE
     Dosage: 9 DF, QD
     Route: 048
     Dates: start: 20130829
  13. SOLIAN [Concomitant]
     Active Substance: AMISULPRIDE
     Dosage: 400 MG, BID
     Dates: start: 20130702
  14. SOLIAN [Concomitant]
     Active Substance: AMISULPRIDE
     Dosage: 400 MG, BID
     Dates: start: 20130801
  15. SOLIAN [Concomitant]
     Active Substance: AMISULPRIDE
     Dosage: 400 MG, BID
     Dates: start: 20140116
  16. LEPONEX [Suspect]
     Active Substance: CLOZAPINE
     Indication: PSYCHOTIC DISORDER
     Dosage: 0.5 DF, QD
     Route: 048
     Dates: start: 20120702, end: 20120704
  17. LEPONEX [Suspect]
     Active Substance: CLOZAPINE
     Dosage: 2 DF, QD
     Route: 048
     Dates: start: 20120706, end: 20120709
  18. LEPONEX [Suspect]
     Active Substance: CLOZAPINE
     Dosage: 1.5 DF, QD
     Route: 048
     Dates: start: 20120711, end: 20120713
  19. LEPONEX [Suspect]
     Active Substance: CLOZAPINE
     Dosage: 2 DF, QD
     Route: 048
     Dates: start: 20120713, end: 20120715
  20. LEPONEX [Suspect]
     Active Substance: CLOZAPINE
     Dosage: 4 DF, QD
     Route: 048
     Dates: start: 20120723, end: 20120731
  21. LEPONEX [Suspect]
     Active Substance: CLOZAPINE
     Dosage: 7 DF, QD
     Route: 048
     Dates: start: 20120813, end: 20120821
  22. LEPONEX [Suspect]
     Active Substance: CLOZAPINE
     Dosage: 9 DF, QD
     Dates: start: 20121228, end: 20130425
  23. LEPONEX [Suspect]
     Active Substance: CLOZAPINE
     Dosage: 9 DF, QD
     Route: 048
     Dates: start: 20130926
  24. LEPONEX [Suspect]
     Active Substance: CLOZAPINE
     Dosage: 9 DF, QD
     Route: 048
     Dates: start: 20140116
  25. DEROXAT [Concomitant]
     Active Substance: PAROXETINE HYDROCHLORIDE
     Indication: PRODUCT USED FOR UNKNOWN INDICATION
     Dosage: 1 DF, UNK
     Dates: start: 20120604, end: 20130627
  26. SEROPRAM (CITALOPRAM HYDROBROMIDE) [Concomitant]
     Active Substance: CITALOPRAM HYDROBROMIDE
     Indication: PRODUCT USED FOR UNKNOWN INDICATION
     Dosage: 1 UNK, UNK
     Dates: start: 20130702, end: 20130901
  27. LEPONEX [Suspect]
     Active Substance: CLOZAPINE
     Dosage: 3 DF, PM
     Route: 048
     Dates: start: 20120715, end: 20120723
  28. LEPONEX [Suspect]
     Active Substance: CLOZAPINE
     Dosage: 5 DF, QD
     Route: 048
     Dates: start: 20140307, end: 20140308
  29. SOLIAN [Concomitant]
     Active Substance: AMISULPRIDE
     Dosage: 400 MG, BID
     Dates: start: 20130604
  30. SOLIAN [Concomitant]
     Active Substance: AMISULPRIDE
     Dosage: 400 MG, BID
     Dates: start: 20131219
  31. LYSANXIA [Concomitant]
     Active Substance: PRAZEPAM
     Indication: PRODUCT USED FOR UNKNOWN INDICATION
     Dosage: 5 DF, QD
     Dates: start: 20121016, end: 20121129
  32. LYSANXIA [Concomitant]
     Active Substance: PRAZEPAM
     Dosage: 10 MG, TID
     Dates: start: 20130604
  33. LYSANXIA [Concomitant]
     Active Substance: PRAZEPAM
     Dosage: 10 MG, TID
     Dates: start: 20160507
  34. LEPONEX [Suspect]
     Active Substance: CLOZAPINE
     Dosage: 1 DF, QD
     Route: 048
     Dates: start: 20120704, end: 20120706
  35. LEPONEX [Suspect]
     Active Substance: CLOZAPINE
     Dosage: 9 DF, QD
     Route: 048
     Dates: start: 20120821, end: 20121029
  36. LEPONEX [Suspect]
     Active Substance: CLOZAPINE
     Dosage: 9 DF, QD
     Route: 048
     Dates: start: 20131219
  37. LEPONEX [Suspect]
     Active Substance: CLOZAPINE
     Dosage: 9 DF, UNK
     Route: 048
     Dates: start: 20151216
  38. SOLIAN [Concomitant]
     Active Substance: AMISULPRIDE
     Dosage: UNK UNK, TID
     Dates: start: 20140306
  39. SOLIAN [Concomitant]
     Active Substance: AMISULPRIDE
     Dosage: 400 MG, BID
     Dates: start: 20121105
  40. SOLIAN [Concomitant]
     Active Substance: AMISULPRIDE
     Dosage: 400 MG, BID
     Dates: start: 20131013
  41. LYSANXIA [Concomitant]
     Active Substance: PRAZEPAM
     Dosage: 3 DF, QD
     Dates: start: 20131219, end: 20140116
  42. LYSANXIA [Concomitant]
     Active Substance: PRAZEPAM
     Dosage: 4 DF, UNK
     Route: 065
     Dates: start: 20140306
  43. LYSANXIA [Concomitant]
     Active Substance: PRAZEPAM
     Dosage: 10 MG, TID
     Dates: start: 20130829
  44. SEROPRAM (CITALOPRAM HYDROBROMIDE) [Concomitant]
     Active Substance: CITALOPRAM HYDROBROMIDE
     Dosage: 1.5 DF, UNK
     Dates: start: 20130901, end: 20130907
  45. LEPONEX [Suspect]
     Active Substance: CLOZAPINE
     Dosage: 9 DF, QD
     Dates: start: 20121129
  46. LEPONEX [Suspect]
     Active Substance: CLOZAPINE
     Dosage: 9 DF, QD
     Route: 048
     Dates: start: 20130702
  47. SOLIAN [Concomitant]
     Active Substance: AMISULPRIDE
     Dosage: 400 MG, BID
     Dates: start: 20121129
  48. SOLIAN [Concomitant]
     Active Substance: AMISULPRIDE
     Dosage: 400 MG, BID
     Dates: start: 20130829
  49. LYSANXIA [Concomitant]
     Active Substance: PRAZEPAM
     Dosage: 10 MG, BID
     Dates: start: 20130124, end: 20131219
  50. LYSANXIA [Concomitant]
     Active Substance: PRAZEPAM
     Dosage: 10 MG, TID
     Dates: start: 20130618
  51. RISPERDAL [Concomitant]
     Active Substance: RISPERIDONE
     Indication: PRODUCT USED FOR UNKNOWN INDICATION
  52. PERFALGAN [Concomitant]
     Active Substance: ACETAMINOPHEN
     Indication: PRODUCT USED FOR UNKNOWN INDICATION
     Dosage: 1 G, QID
     Dates: start: 20120721, end: 20120721
  53. SOLIAN [Concomitant]
     Active Substance: AMISULPRIDE
     Indication: PRODUCT USED FOR UNKNOWN INDICATION
     Dosage: 2 DF, UNK
     Dates: start: 20121016, end: 20140306
  54. SOLIAN [Concomitant]
     Active Substance: AMISULPRIDE
     Dosage: 400 MG, BID
     Dates: start: 20130618
  55. LYSANXIA [Concomitant]
     Active Substance: PRAZEPAM
     Dosage: 10 MG, TID
     Dates: start: 20121129, end: 20130124
  56. LYSANXIA [Concomitant]
     Active Substance: PRAZEPAM
     Dosage: 10 MG, TID
     Dates: start: 20131219
  57. LYSANXIA [Concomitant]
     Active Substance: PRAZEPAM
     Dosage: 10 MG, TID
     Dates: start: 20160514
  58. AUGMENTIN [Concomitant]
     Active Substance: AMOXICILLIN\CLAVULANATE POTASSIUM
     Indication: PRODUCT USED FOR UNKNOWN INDICATION
     Dosage: 1 G, TID
     Dates: start: 20120723, end: 20120801
  59. KARDEGIC [Concomitant]
     Active Substance: ASPIRIN DL-LYSINE
     Indication: PRODUCT USED FOR UNKNOWN INDICATION
     Dosage: 75 MG, UNK
     Dates: start: 20120723, end: 20120903
  60. ATENOLOL. [Concomitant]
     Active Substance: ATENOLOL
     Indication: PRODUCT USED FOR UNKNOWN INDICATION
     Dosage: 50 MG, QD
     Dates: start: 20120727, end: 20120811
  61. ALIMEMAZINE [Concomitant]
     Active Substance: TRIMEPRAZINE
     Indication: PRODUCT USED FOR UNKNOWN INDICATION
  62. LEPONEX [Suspect]
     Active Substance: CLOZAPINE
     Dosage: 1 DF, QD
     Dates: start: 20120709, end: 20120711
  63. LEPONEX [Suspect]
     Active Substance: CLOZAPINE
     Dosage: 5 DF, QD
     Route: 048
     Dates: start: 20120731, end: 20120813
  64. LEPONEX [Suspect]
     Active Substance: CLOZAPINE
     Dosage: 9 DF, QD
     Route: 048
     Dates: start: 20121105
  65. LEPONEX [Suspect]
     Active Substance: CLOZAPINE
     Dosage: 9 DF, QD
     Dates: start: 20131128
  66. LEPONEX [Suspect]
     Active Substance: CLOZAPINE
     Dosage: 3 DF, QD
     Route: 048
     Dates: start: 20140310, end: 20140311
  67. SOLIAN [Concomitant]
     Active Substance: AMISULPRIDE
     Dosage: 400 MG, BID
     Dates: start: 20131128
  68. LYSANXIA [Concomitant]
     Active Substance: PRAZEPAM
     Dosage: 10 MG, TID
     Dates: start: 20140116, end: 20140306
  69. LYSANXIA [Concomitant]
     Active Substance: PRAZEPAM
     Dosage: 10 MG, TID
     Dates: start: 20130702
  70. LYSANXIA [Concomitant]
     Active Substance: PRAZEPAM
     Dosage: 10 MG, TID
     Dates: start: 20131013
  71. THERALENE [Concomitant]
     Active Substance: TRIMEPRAZINE
     Indication: PRODUCT USED FOR UNKNOWN INDICATION
     Dosage: 1 DF, HS
     Dates: end: 20121228
  72. NICOBION [Concomitant]
     Active Substance: NIACINAMIDE
     Indication: PRODUCT USED FOR UNKNOWN INDICATION
     Dosage: 1 DF, UNK
     Dates: start: 20130604

REACTIONS (62)
  - Electrocardiogram T wave abnormal [Unknown]
  - Bundle branch block left [Unknown]
  - Amnesia [Unknown]
  - Non-alcoholic steatohepatitis [Not Recovered/Not Resolved]
  - Antipsychotic drug level below therapeutic [Unknown]
  - Infection [Unknown]
  - White blood cell count decreased [Unknown]
  - Platelet count decreased [Unknown]
  - Umbilical hernia [Unknown]
  - Chest pain [Not Recovered/Not Resolved]
  - Agitation [Unknown]
  - Troponin increased [Unknown]
  - Weight increased [Unknown]
  - Erectile dysfunction [Unknown]
  - Biliary cyst [Unknown]
  - Ventricular hypokinesia [Unknown]
  - Intervertebral disc protrusion [Unknown]
  - Osteoarthritis [Unknown]
  - Cardiac disorder [Unknown]
  - Mastication disorder [Unknown]
  - Lung disorder [Unknown]
  - Dyspnoea [Unknown]
  - Tachycardia [Not Recovered/Not Resolved]
  - Pickwickian syndrome [Unknown]
  - Hypertension [Unknown]
  - Pain [Unknown]
  - General physical health deterioration [Unknown]
  - Hepatic cyst [Unknown]
  - Conjunctival hyperaemia [Unknown]
  - Mitral valve incompetence [Unknown]
  - Delirium [Unknown]
  - Left ventricular hypertrophy [Unknown]
  - Somnolence [Unknown]
  - Drug ineffective [Unknown]
  - Monocyte count increased [Unknown]
  - Pruritus [Unknown]
  - Gait disturbance [Unknown]
  - Toxicity to various agents [Not Recovered/Not Resolved]
  - Upper respiratory tract infection [Unknown]
  - C-reactive protein increased [Unknown]
  - Ejection fraction decreased [Unknown]
  - Aggression [Unknown]
  - Antipsychotic drug level above therapeutic [Unknown]
  - Intervertebral disc space narrowing [Unknown]
  - Confusional state [Unknown]
  - Anxiety [Unknown]
  - Hepatomegaly [Unknown]
  - Splenomegaly [Unknown]
  - Neutrophil count increased [Unknown]
  - Delusion [Unknown]
  - Sleep apnoea syndrome [Unknown]
  - Hepatic steatosis [Unknown]
  - Concomitant disease aggravated [Unknown]
  - Lacrimation increased [Unknown]
  - Mental disorder [Unknown]
  - Hamartoma [Unknown]
  - Aortic dilatation [Unknown]
  - Myelocytosis [Unknown]
  - Memory impairment [Unknown]
  - Exostosis [Unknown]
  - Face oedema [Unknown]
  - Malaise [Not Recovered/Not Resolved]

NARRATIVE: CASE EVENT DATE: 201207
